FAERS Safety Report 5894279-7 (Version None)
Quarter: 2008Q3

REPORT INFORMATION
  Report Type: 
  Country: None (occurrence: None)
  Receive Date: 20080923
  Receipt Date: 20080407
  Transmission Date: 20090109
  Serious: No
  Sender: FDA-Public Use
  Company Number: US-ASTRAZENECA-2008UW06963

PATIENT
  Age: 65 Year
  Sex: Female
  Weight: 61.2 kg

DRUGS (2)
  1. SEROQUEL [Suspect]
     Indication: INSOMNIA
  2. XANAX [Concomitant]

REACTIONS (2)
  - BALANCE DISORDER [None]
  - HEART RATE IRREGULAR [None]
